FAERS Safety Report 10251300 (Version 1)
Quarter: 2014Q2

REPORT INFORMATION
  Report Type: Other
  Country: DE (occurrence: DE)
  Receive Date: 20140621
  Receipt Date: 20140621
  Transmission Date: 20141212
  Serious: No
  Sender: FDA-Public Use
  Company Number: DE-LUPIN PHARMACEUTICALS INC.-E2B_00001981

PATIENT
  Age: 57 Year
  Sex: Male
  Weight: 99 kg

DRUGS (1)
  1. SIMVASTATIN [Suspect]
     Indication: CORONARY ARTERY DISEASE
     Route: 065
     Dates: start: 20131213, end: 201403

REACTIONS (2)
  - Myalgia [Not Recovered/Not Resolved]
  - Abasia [Not Recovered/Not Resolved]
